FAERS Safety Report 20334129 (Version 2)
Quarter: 2022Q1

REPORT INFORMATION
  Report Type: Spontaneous
  Country: JP (occurrence: JP)
  Receive Date: 20220113
  Receipt Date: 20220204
  Transmission Date: 20220424
  Serious: Yes (Death, Hospitalization, Other)
  Sender: FDA-Public Use
  Company Number: JP-DSJP-DSJ-2021-138394

PATIENT
  Age: 80 Year
  Sex: Male

DRUGS (12)
  1. DENOSUMAB [Suspect]
     Active Substance: DENOSUMAB
     Indication: Osteoporosis
     Dosage: 60 MILLIGRAM
     Route: 058
     Dates: start: 20211110, end: 20211110
  2. INFLUENZA VIRUS VACCINE [Suspect]
     Active Substance: INFLUENZA VIRUS VACCINE
     Indication: Immunisation
     Dosage: 0.5 MILLILITER, QD
     Route: 058
     Dates: start: 20211110, end: 20211110
  3. CALCIUM CARBONATE\CHOLECALCIFEROL\MAGNESIUM CARBONATE [Concomitant]
     Active Substance: CALCIUM CARBONATE\CHOLECALCIFEROL\MAGNESIUM CARBONATE
     Indication: Osteoporosis
     Dosage: 2 DF, QD
     Route: 048
     Dates: end: 20211118
  4. NAFTOPIDIL [Concomitant]
     Active Substance: NAFTOPIDIL
     Dosage: 25 MG, QD
     Route: 048
     Dates: end: 20211118
  5. TELMISARTAN [Concomitant]
     Active Substance: TELMISARTAN
     Indication: Hypertension
     Dosage: 20 MG, QD
     Route: 048
     Dates: end: 20211118
  6. MAGNESIUM OXIDE [Concomitant]
     Active Substance: MAGNESIUM OXIDE
     Dosage: 330 MG, QD
     Route: 048
     Dates: end: 20211118
  7. CARBOCYSTEINE [Concomitant]
     Active Substance: CARBOCYSTEINE
     Indication: Emphysema
     Dosage: 250 MG, TID
     Route: 048
     Dates: end: 20211118
  8. ZINC [Concomitant]
     Active Substance: ZINC
     Dosage: 50 MG, TID
     Route: 048
     Dates: end: 20211118
  9. MONTELUKAST SODIUM [Concomitant]
     Active Substance: MONTELUKAST SODIUM
     Indication: Emphysema
     Dosage: 10 MG, QD
     Route: 048
     Dates: end: 20211118
  10. TULOBUTEROL [Concomitant]
     Active Substance: TULOBUTEROL
     Indication: Emphysema
     Dosage: 2 MG, QD
     Route: 050
     Dates: end: 20211118
  11. SPIRIVA [Concomitant]
     Active Substance: TIOTROPIUM BROMIDE MONOHYDRATE
     Indication: Emphysema
     Dosage: 2 DF, QD
     Dates: end: 20211118
  12. EDOXABAN TOSYLATE [Concomitant]
     Active Substance: EDOXABAN TOSYLATE
     Indication: Deep vein thrombosis
     Dosage: 30 MG, QD
     Route: 048
     Dates: start: 20211112, end: 20211118

REACTIONS (2)
  - Rhabdomyolysis [Unknown]
  - Circulatory collapse [Fatal]

NARRATIVE: CASE EVENT DATE: 20211111
